FAERS Safety Report 8782810 (Version 1)
Quarter: 2012Q4

REPORT INFORMATION
  Report Type: Report from Study
  Country: US (occurrence: US)
  Receive Date: 20120913
  Receipt Date: 20120913
  Transmission Date: 20130627
  Serious: No
  Sender: FDA-Public Use
  Company Number: US-VERTEX PHARMACEUTICAL INC.-AE-2012-009922

PATIENT
  Age: 57 Year
  Sex: Male
  Weight: 63.64 kg

DRUGS (8)
  1. INCIVEK [Suspect]
     Indication: HEPATITIS C
     Route: 048
  2. RIBAPAK [Concomitant]
     Dates: end: 20120625
  3. PEGASYS INJECTION [Concomitant]
  4. PAXIL [Concomitant]
  5. LORAZEPAM [Concomitant]
  6. MILK THISTLE [Concomitant]
  7. ARANESP INJECTION [Concomitant]
  8. HYDROCODONE SYP [Concomitant]

REACTIONS (1)
  - Anaemia [Unknown]
